FAERS Safety Report 22027332 (Version 1)
Quarter: 2023Q1

REPORT INFORMATION
  Report Type: Spontaneous
  Country: US (occurrence: None)
  Receive Date: 20230223
  Receipt Date: 20230223
  Transmission Date: 20230417
  Serious: No
  Sender: FDA-Public Use
  Company Number: US-ROCHE-3229862

PATIENT
  Age: 57 Year
  Sex: Female
  Weight: 64.922 kg

DRUGS (1)
  1. XOLAIR [Suspect]
     Active Substance: OMALIZUMAB
     Indication: Asthma
     Dosage: OTHER DOSAGE [E.G. 24/26 MG, 1.6X10^8 CAR-POSITIVE VIABLE T CELLS OR OTHER]
     Route: 058
     Dates: start: 20220718, end: 20221129

REACTIONS (4)
  - Swelling face [Unknown]
  - Hypotension [Unknown]
  - Heart rate decreased [Unknown]
  - Feeling abnormal [Unknown]
